FAERS Safety Report 20490424 (Version 1)
Quarter: 2022Q1

REPORT INFORMATION
  Report Type: Spontaneous
  Country: US (occurrence: US)
  Receive Date: 20220218
  Receipt Date: 20220218
  Transmission Date: 20220423
  Serious: Yes (Other)
  Sender: FDA-Public Use
  Company Number: US-ABBVIE-22K-163-4284509-00

PATIENT
  Sex: Female
  Weight: 77.180 kg

DRUGS (14)
  1. HUMIRA [Suspect]
     Active Substance: ADALIMUMAB
     Indication: Rheumatoid arthritis
     Route: 058
     Dates: start: 2016, end: 2020
  2. MONTELUKAST [Concomitant]
     Active Substance: MONTELUKAST SODIUM
     Indication: Hypersensitivity
  3. FOLIC ACID [Concomitant]
     Active Substance: FOLIC ACID
     Indication: Supplementation therapy
  4. OMEPRAZOLE [Concomitant]
     Active Substance: OMEPRAZOLE
     Indication: Antacid therapy
  5. TIZANIDINE [Concomitant]
     Active Substance: TIZANIDINE
     Indication: Muscle relaxant therapy
  6. GABAPENTIN [Concomitant]
     Active Substance: GABAPENTIN
     Indication: Arthritis
  7. GABAPENTIN [Concomitant]
     Active Substance: GABAPENTIN
     Indication: Swelling
  8. OXYCODONE [Concomitant]
     Active Substance: OXYCODONE
     Indication: Pain
  9. TIZANIDINE [Concomitant]
     Active Substance: TIZANIDINE
     Indication: Muscle relaxant therapy
  10. FLONASE [Concomitant]
     Active Substance: FLUTICASONE PROPIONATE
     Indication: Hypersensitivity
  11. ZINC [Concomitant]
     Active Substance: ZINC
     Indication: Supplementation therapy
  12. VITAMIN C [Concomitant]
     Active Substance: ASCORBIC ACID
     Indication: Supplementation therapy
  13. VITAMIN B12 [Concomitant]
     Active Substance: CYANOCOBALAMIN
     Indication: Supplementation therapy
  14. VITAMIN B2 [Concomitant]
     Active Substance: RIBOFLAVIN
     Indication: Supplementation therapy

REACTIONS (6)
  - Musculoskeletal stiffness [Recovered/Resolved]
  - Paraesthesia [Recovered/Resolved]
  - Neuralgia [Recovered/Resolved]
  - Arthralgia [Recovering/Resolving]
  - Therapeutic product effect decreased [Recovered/Resolved]
  - Body height decreased [Unknown]

NARRATIVE: CASE EVENT DATE: 20200101
